FAERS Safety Report 25677832 (Version 1)
Quarter: 2025Q3

REPORT INFORMATION
  Report Type: Spontaneous
  Country: EU (occurrence: EU)
  Receive Date: 20250813
  Receipt Date: 20250813
  Transmission Date: 20251021
  Serious: Yes (Death)
  Sender: TEVA
  Company Number: None

PATIENT
  Age: 30 Year
  Sex: Female

DRUGS (2)
  1. FLUDARABINE [Suspect]
     Active Substance: FLUDARABINE PHOSPHATE
     Indication: Bone marrow transplant
     Dosage: FLUDARABINE TEVA, SOLUTION FOR DILUTION FOR INJECTION OR INFUSION
     Route: 042
     Dates: start: 20250627, end: 20250701
  2. TREOSULFAN [Suspect]
     Active Substance: TREOSULFAN
     Indication: Bone marrow transplant
     Route: 042
     Dates: start: 20250628, end: 20250630

REACTIONS (1)
  - Colitis [Fatal]

NARRATIVE: CASE EVENT DATE: 20250702
